FAERS Safety Report 16967599 (Version 2)
Quarter: 2019Q4

REPORT INFORMATION
  Report Type: Spontaneous
  Country: ES (occurrence: ES)
  Receive Date: 20191028
  Receipt Date: 20191220
  Transmission Date: 20200122
  Serious: No
  Sender: FDA-Public Use
  Company Number: ES-TOLMAR, INC.-19ES000710

PATIENT
  Sex: Male

DRUGS (1)
  1. ELIGARD [Suspect]
     Active Substance: LEUPROLIDE ACETATE
     Indication: PRODUCT USED FOR UNKNOWN INDICATION
     Dosage: 45 MG, BIANNUAL
     Route: 065

REACTIONS (3)
  - Intercepted product preparation error [None]
  - Syringe issue [None]
  - Wrong technique in product usage process [None]

NARRATIVE: CASE EVENT DATE: 20191009
